FAERS Safety Report 7135683-9 (Version None)
Quarter: 2010Q4

REPORT INFORMATION
  Report Type: 
  Country: None (occurrence: None)
  Receive Date: 20101203
  Receipt Date: 20101130
  Transmission Date: 20110411
  Serious: Yes (Death)
  Sender: FDA-Public Use
  Company Number: JP-SANOFI-AVENTIS-2010SA062231

PATIENT
  Age: 63 Year
  Sex: Male
  Weight: 62.9 kg

DRUGS (4)
  1. BLINDED THERAPY [Suspect]
     Route: 048
     Dates: start: 20100330, end: 20100622
  2. CLOPIDOGREL BISULFATE [Suspect]
     Route: 048
     Dates: start: 20100623, end: 20100820
  3. AMLODIN [Suspect]
     Indication: HYPERTENSION
     Route: 048
     Dates: start: 20040714, end: 20100820
  4. RENIVACE [Suspect]
     Indication: HYPERTENSION
     Route: 048
     Dates: start: 20040714, end: 20100820

REACTIONS (1)
  - SUDDEN CARDIAC DEATH [None]
